FAERS Safety Report 7190398-6 (Version None)
Quarter: 2010Q4

REPORT INFORMATION
  Report Type: 
  Country: None (occurrence: None)
  Receive Date: 20101223
  Receipt Date: 20101217
  Transmission Date: 20110411
  Serious: Yes (Other)
  Sender: FDA-Public Use
  Company Number: US-PFIZER INC-US-WYE-H04622308

PATIENT
  Sex: Female
  Weight: 70 kg

DRUGS (5)
  1. PREMPHASE (PREMARIN;CYCRIN 14/14) [Suspect]
     Indication: HORMONE REPLACEMENT THERAPY
     Dosage: UNK (0.625/2.5 )
     Dates: start: 19981023, end: 20010212
  2. ZYRTEC [Concomitant]
     Indication: HYPERSENSITIVITY
     Dosage: 10 MG, AS NEEDED
     Dates: start: 19990901
  3. TOPROL-XL [Concomitant]
     Indication: HYPERTENSION
     Dosage: 100 MG, UNK
     Dates: start: 20000710
  4. PROMETHAZINE [Concomitant]
     Indication: HYPERSENSITIVITY
     Dosage: 25 MG, UNK
     Dates: start: 20001201, end: 20010301
  5. TRIAMTERENE AND HYDROCHLOROTHIAZIDE [Concomitant]
     Indication: HYPERTENSION
     Dosage: 37.5 MG, UNK
     Dates: start: 20001201, end: 20010126

REACTIONS (1)
  - BREAST CANCER FEMALE [None]
